FAERS Safety Report 16110820 (Version 1)
Quarter: 2019Q2

REPORT INFORMATION
  Report Type: Spontaneous
  Country: US (occurrence: US)
  Receive Date: 20190322
  Receipt Date: 20190322
  Transmission Date: 20190711
  Serious: Yes (Other)
  Sender: FDA-Public Use
  Company Number: None

PATIENT
  Age: 30 Year
  Sex: Female
  Weight: 110 kg

DRUGS (13)
  1. DUPILUMAB [Suspect]
     Active Substance: DUPILUMAB
     Indication: ASTHMA
     Dosage: ?          OTHER FREQUENCY:Q2WEEK;?
     Route: 058
     Dates: start: 20190101, end: 20190212
  2. SYMBICORT [Concomitant]
     Active Substance: BUDESONIDE\FORMOTEROL FUMARATE DIHYDRATE
  3. ZANTAC [Concomitant]
     Active Substance: RANITIDINE HYDROCHLORIDE
  4. PRENATAL VITAMIN [Concomitant]
     Active Substance: VITAMINS
  5. ATROVENT INHALATION [Concomitant]
  6. IMITREX AS NEEDED [Concomitant]
  7. SPIRIVA [Concomitant]
     Active Substance: TIOTROPIUM BROMIDE MONOHYDRATE
  8. PROZAC [Concomitant]
     Active Substance: FLUOXETINE HYDROCHLORIDE
  9. QVAR [Concomitant]
     Active Substance: BECLOMETHASONE DIPROPIONATE
  10. ALBUTEROL. [Concomitant]
     Active Substance: ALBUTEROL
  11. NEXPLANON [Concomitant]
     Active Substance: ETONOGESTREL
  12. HCTZ [Concomitant]
     Active Substance: HYDROCHLOROTHIAZIDE
  13. SINGULAIR [Concomitant]
     Active Substance: MONTELUKAST SODIUM

REACTIONS (2)
  - Paraesthesia [None]
  - Dizziness [None]

NARRATIVE: CASE EVENT DATE: 20190307
